FAERS Safety Report 15555148 (Version 12)
Quarter: 2019Q4

REPORT INFORMATION
  Report Type: Report from Study
  Country: DE (occurrence: DE)
  Receive Date: 20181026
  Receipt Date: 20191205
  Transmission Date: 20200122
  Serious: Yes (Other)
  Sender: FDA-Public Use
  Company Number: DE-ROCHE-2130074

PATIENT
  Sex: Female

DRUGS (5)
  1. OCREVUS [Suspect]
     Active Substance: OCRELIZUMAB
     Dosage: SECOND INFUSION
     Route: 042
     Dates: start: 20180517
  2. MAXIM [DIENOGEST;ETHINYLESTRADIOL] [Concomitant]
     Active Substance: DIENOGEST\ETHINYL ESTRADIOL
     Indication: CONTRACEPTION
  3. OCREVUS [Suspect]
     Active Substance: OCRELIZUMAB
     Dosage: SECOND MAINTENANCE DOSE
     Route: 042
     Dates: start: 20190523
  4. OCREVUS [Suspect]
     Active Substance: OCRELIZUMAB
     Indication: RELAPSING-REMITTING MULTIPLE SCLEROSIS
     Dosage: FIRST INFUSION
     Route: 042
     Dates: start: 20180503
  5. OCREVUS [Suspect]
     Active Substance: OCRELIZUMAB
     Dosage: THIRD INFUSION
     Route: 042
     Dates: start: 20181122

REACTIONS (10)
  - Eye discharge [Recovering/Resolving]
  - Bronchitis [Not Recovered/Not Resolved]
  - Depression [Recovered/Resolved]
  - Fatigue [Recovered/Resolved]
  - Pyrexia [Recovered/Resolved]
  - Cough [Recovered/Resolved]
  - Dizziness [Recovered/Resolved]
  - Abscess limb [Recovered/Resolved]
  - Nasopharyngitis [Recovered/Resolved]
  - Dry eye [Recovering/Resolving]

NARRATIVE: CASE EVENT DATE: 20180503
